FAERS Safety Report 9475552 (Version 1)
Quarter: 2013Q3

REPORT INFORMATION
  Report Type: Report from Study
  Country: FR (occurrence: FR)
  Receive Date: 20130826
  Receipt Date: 20130826
  Transmission Date: 20140515
  Serious: Yes (Hospitalization)
  Sender: FDA-Public Use
  Company Number: FR-ROCHE-1265955

PATIENT
  Age: 87 Year
  Sex: Male

DRUGS (7)
  1. RANIBIZUMAB [Suspect]
     Indication: PRODUCT USED FOR UNKNOWN INDICATION
     Route: 050
     Dates: start: 20120514
  2. AMITRIPTYLINE [Concomitant]
     Route: 065
     Dates: start: 19980213
  3. ATENOLOL [Concomitant]
  4. BENDROFLUMETHIAZIDE [Concomitant]
     Route: 065
     Dates: start: 2008
  5. ATORVASTATIN [Concomitant]
     Route: 065
     Dates: start: 2008
  6. AMLODIPIN [Concomitant]
  7. SIMVASTATIN [Concomitant]
     Route: 065
     Dates: start: 2006

REACTIONS (1)
  - Fall [Unknown]
